FAERS Safety Report 12573813 (Version 1)
Quarter: 2016Q3

REPORT INFORMATION
  Report Type: Spontaneous
  Country: DE (occurrence: DE)
  Receive Date: 20160720
  Receipt Date: 20160720
  Transmission Date: 20161109
  Serious: Yes (Hospitalization)
  Sender: FDA-Public Use
  Company Number: DE-TEVA-675240GER

PATIENT
  Age: 67 Year
  Sex: Female

DRUGS (8)
  1. DIAZEPAM. [Suspect]
     Active Substance: DIAZEPAM
     Dates: end: 20140826
  2. MACROGOL AL [Interacting]
     Active Substance: POLYETHYLENE GLYCOL 3350\POTASSIUM CHLORIDE\SODIUM BICARBONATE\SODIUM CHLORIDE
  3. GLIMEPIRID - 1 A PHARMA [Interacting]
     Active Substance: GLIMEPIRIDE
  4. OLANZAPIN ARISTO [Interacting]
     Active Substance: OLANZAPINE
     Dates: end: 20140827
  5. OXYBUTYNIN [Interacting]
     Active Substance: OXYBUTYNIN
  6. L-THYROXIN [Interacting]
     Active Substance: LEVOTHYROXINE SODIUM
  7. LEVOMEPROMAZINE [Interacting]
     Active Substance: LEVOMEPROMAZINE
  8. HALOPERIDOL DESITIN [Interacting]
     Active Substance: HALOPERIDOL

REACTIONS (9)
  - Disorientation [None]
  - Restlessness [None]
  - Catatonia [None]
  - Delirium [Unknown]
  - General physical health deterioration [None]
  - Decreased appetite [None]
  - Pneumonia [None]
  - Drug interaction [Unknown]
  - Screaming [None]

NARRATIVE: CASE EVENT DATE: 20140826
